FAERS Safety Report 7311868-3 (Version None)
Quarter: 2011Q1

REPORT INFORMATION
  Report Type: 
  Country: None (occurrence: None)
  Receive Date: 20110215
  Receipt Date: 20110215
  Transmission Date: 20110831
  Serious: Yes (Hospitalization)
  Sender: FDA-Public Use
  Company Number: None

PATIENT
  Age: 86 Year
  Sex: Female
  Weight: 63.3 kg

DRUGS (19)
  1. CORICIDIN [Concomitant]
  2. LEVOTHYROXINE [Concomitant]
  3. IMODIUM MULTI-SYMPTOM RELIEF [Concomitant]
  4. NORVASC [Concomitant]
  5. GUAIFENESIN [Concomitant]
  6. HYDROCHLOROTHIAZIDE [Concomitant]
  7. MIRALAX [Concomitant]
  8. NORMAL SALINE [Concomitant]
  9. TRAZODONE HCL [Concomitant]
  10. COREG [Concomitant]
  11. NAPROXEN [Concomitant]
  12. REMERON [Concomitant]
  13. FENTANYL-100 [Suspect]
     Indication: PAIN
     Dosage: 50MG Q72HR TOPICAL CHRONIC W/RECENT INCREASE
     Route: 061
  14. ZYPREXA [Concomitant]
  15. ACETAMINOPHEN [Concomitant]
  16. ASA [Concomitant]
  17. CLONAZEPAM [Concomitant]
  18. KLONOPIN [Concomitant]
  19. COLACE [Concomitant]

REACTIONS (4)
  - AGITATION [None]
  - CARDIO-RESPIRATORY ARREST [None]
  - ACCIDENTAL OVERDOSE [None]
  - PNEUMONIA ASPIRATION [None]
